FAERS Safety Report 6150529-3 (Version None)
Quarter: 2009Q2

REPORT INFORMATION
  Report Type: 
  Country: None (occurrence: None)
  Receive Date: 20090409
  Receipt Date: 20090331
  Transmission Date: 20091009
  Serious: Yes (Other)
  Sender: FDA-Public Use
  Company Number: US-AMGEN-US341587

PATIENT
  Age: 64 Year
  Sex: Male

DRUGS (4)
  1. PROCRIT [Suspect]
     Indication: ANAEMIA
     Dates: start: 20041101, end: 20050501
  2. ARANESP [Suspect]
     Indication: RENAL FAILURE CHRONIC
     Dates: start: 20050501, end: 20071201
  3. INSULIN NPH [Concomitant]
  4. INSULIN [Concomitant]

REACTIONS (1)
  - GLYCOSYLATED HAEMOGLOBIN DECREASED [None]
